FAERS Safety Report 15585643 (Version 2)
Quarter: 2018Q4

REPORT INFORMATION
  Report Type: Report from Study
  Country: BR (occurrence: BR)
  Receive Date: 20181104
  Receipt Date: 20181231
  Transmission Date: 20190205
  Serious: Yes (Other)
  Sender: FDA-Public Use
  Company Number: BR-BRISTOL-MYERS SQUIBB COMPANY-BMS-2018-100171

PATIENT
  Age: 65 Year
  Sex: Female

DRUGS (1)
  1. ABATACEPT [Suspect]
     Active Substance: ABATACEPT
     Indication: RHEUMATOID ARTHRITIS
     Dosage: 250 MG, QWK
     Route: 042

REACTIONS (6)
  - Off label use [Unknown]
  - Arthropathy [Unknown]
  - Pain in extremity [Unknown]
  - Hypokinesia [Unknown]
  - Pyrexia [Unknown]
  - Spinal pain [Unknown]

NARRATIVE: CASE EVENT DATE: 20180912
